FAERS Safety Report 6923062-6 (Version None)
Quarter: 2010Q3

REPORT INFORMATION
  Report Type: 
  Country: None (occurrence: None)
  Receive Date: 20100813
  Receipt Date: 20100802
  Transmission Date: 20110219
  Serious: Yes (Other)
  Sender: FDA-Public Use
  Company Number: US-PFIZER INC-2008156721

PATIENT
  Sex: Female
  Weight: 67.585 kg

DRUGS (5)
  1. XALATAN [Suspect]
     Indication: INTRAOCULAR PRESSURE TEST
     Dosage: ONE DROP IN EACH EYE
     Route: 047
     Dates: start: 20070101
  2. XALATAN [Suspect]
     Indication: GLAUCOMA
  3. PREDNISOLONE ACETATE [Concomitant]
     Dosage: UNK
  4. NEVANAC [Concomitant]
     Dosage: UNK
  5. MOXIFLOXACIN HYDROCHLORIDE [Concomitant]
     Dosage: UNK

REACTIONS (3)
  - BLOOD URINE PRESENT [None]
  - CATARACT OPERATION [None]
  - INTRAOCULAR PRESSURE INCREASED [None]
